FAERS Safety Report 15762142 (Version 1)
Quarter: 2018Q4

REPORT INFORMATION
  Report Type: Spontaneous
  Country: US (occurrence: US)
  Receive Date: 20181226
  Receipt Date: 20181226
  Transmission Date: 20190205
  Serious: No
  Sender: FDA-Public Use
  Company Number: US-PFIZER INC-2018276686

PATIENT
  Age: 11 Year
  Sex: Male

DRUGS (2)
  1. GENOTROPIN [Suspect]
     Active Substance: SOMATROPIN
     Dosage: 1.2 MG, DAILY
  2. GENOTROPIN [Suspect]
     Active Substance: SOMATROPIN
     Dosage: 0.8 MG, DAILY

REACTIONS (6)
  - Product dose omission [Unknown]
  - Tri-iodothyronine free increased [Unknown]
  - Blood sodium increased [Unknown]
  - White blood cell count decreased [Unknown]
  - Device malfunction [Unknown]
  - Blood 25-hydroxycholecalciferol increased [Unknown]
